FAERS Safety Report 25010509 (Version 1)
Quarter: 2025Q1

REPORT INFORMATION
  Report Type: Spontaneous
  Country: RU (occurrence: RU)
  Receive Date: 20250225
  Receipt Date: 20250225
  Transmission Date: 20250408
  Serious: Yes (Other)
  Sender: SANDOZ
  Company Number: RU-SANDOZ-SDZ2025RU011061

PATIENT
  Sex: Female

DRUGS (1)
  1. ENALAPRIL MALEATE [Suspect]
     Active Substance: ENALAPRIL MALEATE
     Indication: Blood pressure measurement
     Route: 065

REACTIONS (2)
  - Feeling abnormal [Unknown]
  - Hypertension [Unknown]
